FAERS Safety Report 7495057-8 (Version None)
Quarter: 2011Q2

REPORT INFORMATION
  Report Type: 
  Country: None (occurrence: None)
  Receive Date: 20110520
  Receipt Date: 20110506
  Transmission Date: 20111010
  Serious: Yes (Death)
  Sender: FDA-Public Use
  Company Number: GB-GENENTECH-317045

PATIENT
  Sex: Female
  Weight: 54 kg

DRUGS (7)
  1. BUMETANIDE [Concomitant]
     Indication: CARDIAC FAILURE
  2. LISINOPRIL [Concomitant]
     Indication: CARDIAC FAILURE
  3. BEZAFIBRATE [Concomitant]
     Indication: HYPERLIPIDAEMIA
  4. LUCENTIS [Suspect]
     Indication: PRODUCT USED FOR UNKNOWN INDICATION
  5. SPIRONOLACTONE [Concomitant]
     Indication: CARDIAC FAILURE
  6. WARFARIN SODIUM [Concomitant]
     Indication: ATRIAL FIBRILLATION
  7. LANOXIN [Concomitant]
     Indication: ATRIAL FIBRILLATION

REACTIONS (1)
  - SEPSIS [None]
